FAERS Safety Report 18600569 (Version 1)
Quarter: 2020Q4

REPORT INFORMATION
  Report Type: Report from Study
  Country: US (occurrence: US)
  Receive Date: 20201210
  Receipt Date: 20201210
  Transmission Date: 20210114
  Serious: Yes (Disabling)
  Sender: FDA-Public Use
  Company Number: US-GILEAD-2020-0500607

PATIENT
  Age: 62 Year
  Sex: Male

DRUGS (2)
  1. SOFOSBUVIR W/VELPATASVIR [Suspect]
     Active Substance: SOFOSBUVIR\VELPATASVIR
     Indication: HEPATITIS C
     Dosage: ONCE DAILY BY MOUTH
     Route: 048
     Dates: start: 20200930
  2. MELOXICAM. [Concomitant]
     Active Substance: MELOXICAM

REACTIONS (6)
  - Illness [Recovering/Resolving]
  - Asthenia [Recovering/Resolving]
  - Nausea [Recovering/Resolving]
  - Pain [Not Recovered/Not Resolved]
  - Feeling abnormal [Recovering/Resolving]
  - Headache [Recovering/Resolving]

NARRATIVE: CASE EVENT DATE: 20201001
